FAERS Safety Report 5272236-1 (Version None)
Quarter: 2007Q1

REPORT INFORMATION
  Report Type: 
  Country: None (occurrence: None)
  Receive Date: 20070320
  Receipt Date: 20070320
  Transmission Date: 20070707
  Serious: Yes (Other)
  Sender: FDA-Public Use
  Company Number: None

PATIENT
  Age: 60 Year
  Sex: Female
  Weight: 59.8748 kg

DRUGS (1)
  1. TRI-LUMA [Suspect]
     Indication: SKIN DISCOLOURATION
     Dosage: SIZE OF A PEA TWICE DAILY TOP
     Route: 061
     Dates: start: 20060515, end: 20070314

REACTIONS (3)
  - PHOTOPHOBIA [None]
  - STRABISMUS [None]
  - VISUAL DISTURBANCE [None]
